FAERS Safety Report 5217482-8 (Version None)
Quarter: 2006Q4

REPORT INFORMATION
  Report Type: 
  Country: None (occurrence: None)
  Receive Date: 20061130
  Receipt Date: 20060825
  Transmission Date: 20070319
  Serious: Yes (Hospitalization, Other)
  Sender: FDA-Public Use
  Company Number: US200603000450

PATIENT
  Age: 51 Year
  Sex: Male
  Weight: 99.8 kg

DRUGS (4)
  1. ZYPREXA [Suspect]
     Dosage: SEE IMAGE
     Dates: start: 20041101, end: 20041201
  2. ZYPREXA [Suspect]
     Dosage: SEE IMAGE
     Dates: start: 20041201, end: 20050110
  3. ABILIFY [Concomitant]
  4. RISPERIDONE [Concomitant]

REACTIONS (5)
  - DIABETES MELLITUS [None]
  - DIABETIC KETOACIDOSIS [None]
  - HYPERLIPIDAEMIA [None]
  - METABOLIC DISORDER [None]
  - WEIGHT INCREASED [None]
